FAERS Safety Report 20975727 (Version 1)
Quarter: 2022Q2

REPORT INFORMATION
  Report Type: Spontaneous
  Country: US (occurrence: None)
  Receive Date: 20220617
  Receipt Date: 20220617
  Transmission Date: 20220721
  Serious: Yes (Hospitalization)
  Sender: FDA-Public Use
  Company Number: None

PATIENT
  Age: 67 Year
  Sex: Female
  Weight: 108.2 kg

DRUGS (1)
  1. VENOFER [Suspect]
     Active Substance: IRON SUCROSE
     Indication: Iron deficiency
     Dosage: FREQUENCY : ONCE;?
     Route: 042
     Dates: start: 20220610, end: 20220610

REACTIONS (5)
  - Nausea [None]
  - Dyspnoea [None]
  - Tremor [None]
  - Tachycardia [None]
  - Therapy non-responder [None]

NARRATIVE: CASE EVENT DATE: 20220610
